FAERS Safety Report 9649654 (Version 1)
Quarter: 2013Q4

REPORT INFORMATION
  Report Type: Report from Study
  Country: US (occurrence: US)
  Receive Date: 20131028
  Receipt Date: 20131028
  Transmission Date: 20140711
  Serious: Yes (Hospitalization, Disabling, Other)
  Sender: FDA-Public Use
  Company Number: US-ABBVIE-13P-163-1160819-00

PATIENT
  Age: 24 Year
  Sex: Female

DRUGS (5)
  1. LUPRON DEPOT [Suspect]
     Indication: ENDOMETRIOSIS
     Dates: start: 20130710
  2. IBUPROFEN [Concomitant]
     Indication: PRODUCT USED FOR UNKNOWN INDICATION
  3. BENADRYL [Concomitant]
     Indication: PRODUCT USED FOR UNKNOWN INDICATION
  4. ACYCLOVIR [Concomitant]
     Indication: HERPES SIMPLEX
  5. 3-4 DIFFERENT TYPES OF BIRTH CONTROL [Concomitant]
     Indication: PRODUCT USED FOR UNKNOWN INDICATION

REACTIONS (15)
  - Brain neoplasm benign [Unknown]
  - Grand mal convulsion [Not Recovered/Not Resolved]
  - Amnesia [Unknown]
  - Depression [Unknown]
  - Anger [Unknown]
  - Depressed mood [Unknown]
  - Agitation [Unknown]
  - Blood cortisol decreased [Unknown]
  - Pelvic pain [Unknown]
  - Abdominal distension [Unknown]
  - Dysphemia [Unknown]
  - Tinnitus [Unknown]
  - Tremor [Unknown]
  - Tremor [Unknown]
  - Headache [Unknown]
